FAERS Safety Report 21459218 (Version 1)
Quarter: 2022Q4

REPORT INFORMATION
  Report Type: Spontaneous
  Country: US (occurrence: None)
  Receive Date: 20221013
  Receipt Date: 20221013
  Transmission Date: 20230113
  Serious: Yes (Hospitalization)
  Sender: FDA-Public Use
  Company Number: None

PATIENT
  Sex: Female

DRUGS (11)
  1. HUMIRA [Suspect]
     Active Substance: ADALIMUMAB
     Indication: Ankylosing spondylitis
     Dosage: 40 MG/0.4ML?INJECT 0.4 ML (40 MG) INTO FATTY TISSUE UNDER SKIN EVERY 14 DAYS?
     Route: 058
     Dates: start: 20220208
  2. CETIRIZINE [Concomitant]
  3. ESTARYLLA [Concomitant]
     Active Substance: ETHINYL ESTRADIOL\NORGESTIMATE
  4. HYDROCO/APAP [Concomitant]
  5. LEVALBUTEROL [Concomitant]
  6. LIDOCAINE [Concomitant]
  7. MONTELUKAST [Concomitant]
  8. OMEPRAZOLE [Concomitant]
  9. ONDANSETRON [Concomitant]
     Active Substance: ONDANSETRON
  10. TRIAMCINOLON [Concomitant]
  11. VENLAFAXINE [Concomitant]

REACTIONS (5)
  - Nonspecific reaction [None]
  - Joint stiffness [None]
  - Fatigue [None]
  - Arthralgia [None]
  - Therapy interrupted [None]
